FAERS Safety Report 16119872 (Version 1)
Quarter: 2019Q1

REPORT INFORMATION
  Report Type: Spontaneous
  Country: FR (occurrence: FR)
  Receive Date: 20190326
  Receipt Date: 20190326
  Transmission Date: 20190418
  Serious: Yes (Hospitalization)
  Sender: FDA-Public Use
  Company Number: PHHY2019FR063062

PATIENT
  Age: 63 Year
  Sex: Male
  Weight: 84 kg

DRUGS (1)
  1. VOTRIENT [Suspect]
     Active Substance: PAZOPANIB HYDROCHLORIDE
     Indication: CLEAR CELL RENAL CELL CARCINOMA
     Dosage: 800 MG, QD
     Route: 048
     Dates: start: 20181001, end: 20181115

REACTIONS (6)
  - Food aversion [Recovering/Resolving]
  - Mucosal inflammation [Recovering/Resolving]
  - Weight decreased [Recovering/Resolving]
  - Haematuria [Recovering/Resolving]
  - Fatigue [Recovering/Resolving]
  - Microangiopathy [Recovering/Resolving]

NARRATIVE: CASE EVENT DATE: 201810
